FAERS Safety Report 6192776-0 (Version None)
Quarter: 2009Q2

REPORT INFORMATION
  Report Type: 
  Country: None (occurrence: None)
  Receive Date: 20090518
  Receipt Date: 20080721
  Transmission Date: 20091009
  Serious: No
  Sender: FDA-Public Use
  Company Number: US-TYCO HEALTHCARE/MALLINCKRODT-T200801212

PATIENT

DRUGS (8)
  1. ACETAMINOPHEN AND HYDROCODONE BITARTRATE [Suspect]
     Indication: BACK PAIN
     Dosage: ONE TABLET, TID
     Route: 048
     Dates: start: 20070101, end: 20080701
  2. ACETAMINOPHEN AND HYDROCODONE BITARTRATE [Suspect]
     Dosage: UP TO 8 TABLETS, QD
     Dates: start: 20070101, end: 20080701
  3. NEURONTIN [Concomitant]
     Indication: BACK PAIN
     Dosage: UNK, QD
     Route: 048
  4. MAXZIDE [Concomitant]
     Dosage: UNK,UNK
  5. CLARINEX                           /01202601/ [Concomitant]
     Indication: MULTIPLE ALLERGIES
     Dosage: UNK, UNK
  6. DETROL                             /01350201/ [Concomitant]
     Indication: POLLAKIURIA
     Dosage: UNK, QD
     Route: 048
  7. LEFLUNOMIDE [Concomitant]
     Indication: ARTHRITIS
     Dosage: 20 MG, QD
     Route: 048
  8. METOPROLOL [Concomitant]
     Indication: HYPERTENSION
     Dosage: 25 MG, QD
     Route: 048

REACTIONS (2)
  - DEAFNESS [None]
  - EPISTAXIS [None]
